FAERS Safety Report 13366113 (Version 4)
Quarter: 2017Q2

REPORT INFORMATION
  Report Type: Spontaneous
  Country: FR (occurrence: FR)
  Receive Date: 20170323
  Receipt Date: 20170627
  Transmission Date: 20170830
  Serious: Yes (Other)
  Sender: FDA-Public Use
  Company Number: FR-SA-2017SA044588

PATIENT
  Age: 54 Year
  Sex: Male
  Weight: 81 kg

DRUGS (37)
  1. TAVANIC [Suspect]
     Active Substance: LEVOFLOXACIN
     Dosage: DAILY DOSE-1DF,2 DAY
     Route: 042
     Dates: start: 20170322
  2. HEPARIN [Suspect]
     Active Substance: HEPARIN SODIUM
     Route: 058
     Dates: start: 20170122, end: 20170131
  3. VENOFER [Suspect]
     Active Substance: IRON SUCROSE
     Route: 042
     Dates: start: 20170201, end: 20170205
  4. OXYCONTIN [Suspect]
     Active Substance: OXYCODONE HYDROCHLORIDE
     Dosage: 2 DAYS?PROLONGED RELEASED FILM COATED TABLET
     Route: 048
     Dates: start: 201702, end: 20170304
  5. TAVANIC [Suspect]
     Active Substance: LEVOFLOXACIN
     Dosage: DAILY DOSE-1DF,2 DAY
     Route: 042
     Dates: start: 20170309
  6. OFLOCET [Suspect]
     Active Substance: OFLOXACIN
     Dosage: FORM-INJECTABLE SOLUTION FOR INFUSION?2 DAYS
     Route: 042
     Dates: start: 20170109, end: 20170111
  7. METFORMIN [Suspect]
     Active Substance: METFORMIN HYDROCHLORIDE
     Dosage: FREQUENCY-3 DAY
     Route: 048
     Dates: start: 20170206
  8. KARDEGIC [Suspect]
     Active Substance: ASPIRIN LYSINE
     Route: 048
     Dates: start: 20161212, end: 20170218
  9. ATORVASTATIN [Suspect]
     Active Substance: ATORVASTATIN
     Route: 048
     Dates: end: 20170112
  10. TAZOCILLINE [Suspect]
     Active Substance: PIPERACILLIN SODIUM\TAZOBACTAM SODIUM
     Dosage: 3 DAY
     Route: 042
     Dates: start: 20170208, end: 20170304
  11. OXYNORM [Suspect]
     Active Substance: OXYCODONE HYDROCHLORIDE
     Route: 048
  12. LANTUS [Suspect]
     Active Substance: INSULIN GLARGINE
     Route: 058
  13. RIFADINE [Suspect]
     Active Substance: RIFAMPIN
     Route: 042
     Dates: start: 20170309
  14. LANSOYL [Suspect]
     Active Substance: MINERAL OIL
     Route: 048
  15. PERINDOPRIL [Suspect]
     Active Substance: PERINDOPRIL
     Route: 048
  16. GABAPENTIN. [Suspect]
     Active Substance: GABAPENTIN
     Dosage: 3 DAY
     Route: 048
     Dates: end: 20170113
  17. CLOPIDOGREL BISULFATE. [Suspect]
     Active Substance: CLOPIDOGREL BISULFATE
     Route: 048
     Dates: end: 20161212
  18. DALACINE [Suspect]
     Active Substance: CLINDAMYCIN HYDROCHLORIDE
     Dosage: 4 DAY
     Route: 065
     Dates: start: 20170111, end: 20170208
  19. DIAMICRON [Suspect]
     Active Substance: GLICLAZIDE
     Route: 048
     Dates: start: 20170207
  20. ACTISKENAN [Suspect]
     Active Substance: MORPHINE SULFATE
     Dosage: 4 DAY
     Route: 048
     Dates: start: 201702
  21. HUMALOG [Suspect]
     Active Substance: INSULIN LISPRO
     Dosage: 3 DAY
     Route: 058
  22. RIFADINE [Suspect]
     Active Substance: RIFAMPIN
     Route: 042
     Dates: start: 20170208, end: 20170304
  23. LYRICA [Suspect]
     Active Substance: PREGABALIN
     Dosage: 3 DAY
     Route: 048
     Dates: start: 20170207
  24. ATARAX [Suspect]
     Active Substance: HYDROXYZINE HYDROCHLORIDE
     Dosage: 4 DAY?FILM COATED DIVISIBLE TABLET
     Route: 048
     Dates: start: 20170129, end: 20170207
  25. ACUPAN [Suspect]
     Active Substance: NEFOPAM HYDROCHLORIDE
     Route: 048
  26. PARACETAMOL [Suspect]
     Active Substance: ACETAMINOPHEN
     Dosage: 4 DAY
     Route: 048
     Dates: start: 20170203
  27. LOVENOX [Suspect]
     Active Substance: ENOXAPARIN SODIUM
     Route: 058
     Dates: start: 20161223, end: 20170306
  28. AUGMENTIN [Suspect]
     Active Substance: AMOXICILLIN\CLAVULANATE POTASSIUM
     Dosage: 3 DAY
     Route: 048
     Dates: start: 20170106, end: 20170109
  29. ZOPHREN [Suspect]
     Active Substance: ONDANSETRON
     Route: 042
     Dates: start: 20170105
  30. TARDYFERON [Suspect]
     Active Substance: FERROUS SULFATE
     Route: 048
     Dates: start: 201702, end: 20170304
  31. TAVANIC [Suspect]
     Active Substance: LEVOFLOXACIN
     Dosage: DAILY DOSE-1DF,2 DAY
     Route: 042
     Dates: start: 20170208, end: 20170304
  32. VERSATIS [Suspect]
     Active Substance: LIDOCAINE
     Route: 003
     Dates: end: 20170207
  33. MOVICOL [Suspect]
     Active Substance: POLYETHYLENE GLYCOL 3350\POTASSIUM CHLORIDE\SODIUM BICARBONATE\SODIUM CHLORIDE
     Route: 048
  34. LORMETAZEPAM [Suspect]
     Active Substance: LORMETAZEPAM
     Route: 048
  35. TRAMADOL. [Suspect]
     Active Substance: TRAMADOL
     Route: 048
     Dates: start: 20170203
  36. OMEPRAZOLE. [Suspect]
     Active Substance: OMEPRAZOLE
     Route: 048
     Dates: end: 20170207
  37. IMOVANE [Suspect]
     Active Substance: ZOPICLONE
     Dosage: FILM COATED DIVISIBLE TABLET
     Route: 048
     Dates: start: 201702

REACTIONS (4)
  - Pancytopenia [Recovered/Resolved]
  - Chills [Recovered/Resolved]
  - Rash maculo-papular [Recovered/Resolved]
  - Hyperthermia [Recovered/Resolved]

NARRATIVE: CASE EVENT DATE: 20170304
